FAERS Safety Report 5196121-9 (Version None)
Quarter: 2006Q4

REPORT INFORMATION
  Report Type: 
  Country: None (occurrence: None)
  Receive Date: 20061226
  Receipt Date: 20061220
  Transmission Date: 20070319
  Serious: Yes (Other)
  Sender: FDA-Public Use
  Company Number: FRWYE909020DEC06

PATIENT
  Age: 26 Year
  Sex: Female

DRUGS (1)
  1. ADVIL [Suspect]
     Dosage: ORAL
     Route: 048
     Dates: start: 20060101, end: 20061201

REACTIONS (1)
  - TOXIC SKIN ERUPTION [None]
